FAERS Safety Report 8536045-X (Version None)
Quarter: 2012Q2

REPORT INFORMATION
  Report Type: 
  Country: None (occurrence: None)
  Receive Date: 20120412
  Receipt Date: 20091109
  Transmission Date: 20120825
  Serious: Yes (Other)
  Sender: FDA-Public Use
  Company Number: PHEH2009US15451

PATIENT
  Age: 21 Year
  Sex: Male

DRUGS (4)
  1. ZOLOFT [Concomitant]
  2. DEPAKOTE [Concomitant]
  3. CLOZAPINE [Suspect]
     Indication: PSYCHOTIC DISORDER
     Dosage: 600 MG, ORAL
     Route: 048
  4. ABILIFY [Concomitant]

REACTIONS (7)
  - CHILLS [None]
  - DIARRHOEA [None]
  - VOMITING [None]
  - SALIVARY HYPERSECRETION [None]
  - CONVULSION [None]
  - AMNESIA [None]
  - SOMNOLENCE [None]
